FAERS Safety Report 6146057-1 (Version None)
Quarter: 2009Q2

REPORT INFORMATION
  Report Type: 
  Country: None (occurrence: None)
  Receive Date: 20090407
  Receipt Date: 20090327
  Transmission Date: 20091009
  Serious: No
  Sender: FDA-Public Use
  Company Number: US-B.I. PHARMACEUTICALS,INC./RIDGEFIELD-2009-BP-03881BP

PATIENT
  Age: 84 Year
  Sex: Female

DRUGS (3)
  1. ATROVENT HFA [Suspect]
  2. NICOTINE POLACRILEX [Suspect]
     Indication: SMOKING CESSATION THERAPY
     Route: 002
     Dates: start: 20090201
  3. PRO-AIR (PROCATEROL HYDROCHLORIDE) [Concomitant]

REACTIONS (1)
  - DYSPNOEA [None]
